FAERS Safety Report 11311807 (Version 2)
Quarter: 2015Q4

REPORT INFORMATION
  Report Type: Spontaneous
  Country: ES (occurrence: ES)
  Receive Date: 20150727
  Receipt Date: 20151006
  Transmission Date: 20160304
  Serious: No
  Sender: FDA-Public Use
  Company Number: ES-JNJFOC-20150714448

PATIENT
  Sex: Female
  Weight: 50 kg

DRUGS (1)
  1. DUROGESIC [Suspect]
     Active Substance: FENTANYL
     Indication: PRODUCT USED FOR UNKNOWN INDICATION
     Route: 062
     Dates: start: 201507

REACTIONS (3)
  - Drug administered at inappropriate site [Recovered/Resolved]
  - Product quality issue [Recovered/Resolved]
  - Hyperhidrosis [Unknown]
